FAERS Safety Report 20994604 (Version 4)
Quarter: 2024Q2

REPORT INFORMATION
  Report Type: Report from Study
  Country: US (occurrence: US)
  Receive Date: 20220622
  Receipt Date: 20240420
  Transmission Date: 20240716
  Serious: Yes (Hospitalization, Other)
  Sender: FDA-Public Use
  Company Number: US-ABBVIE-22K-163-4440816-00

PATIENT
  Age: 77 Year
  Sex: Female
  Weight: 77.11 kg

DRUGS (13)
  1. RINVOQ [Suspect]
     Active Substance: UPADACITINIB
     Indication: Rheumatoid arthritis
     Dosage: FORM STRENGTH: 15 MG
     Route: 048
     Dates: start: 202102
  2. METHOTREXATE [Concomitant]
     Active Substance: METHOTREXATE
     Indication: Product used for unknown indication
  3. PFIZER-BIONTECH COVID-19 VACCINE [Concomitant]
     Active Substance: TOZINAMERAN
     Indication: COVID-19 immunisation
     Dosage: FIRST DOSE
     Route: 030
     Dates: start: 20210210, end: 20210210
  4. PFIZER-BIONTECH COVID-19 VACCINE [Concomitant]
     Active Substance: TOZINAMERAN
     Indication: COVID-19 immunisation
     Dosage: SECOND DOSE
     Route: 030
     Dates: start: 20210604, end: 20210604
  5. PFIZER-BIONTECH COVID-19 VACCINE [Concomitant]
     Active Substance: TOZINAMERAN
     Indication: COVID-19 immunisation
     Dosage: THIRD DOSE
     Route: 030
     Dates: start: 20210824, end: 20210824
  6. Covid-19 Vaccine [Concomitant]
     Indication: COVID-19 immunisation
     Dosage: FOURTH DOSE
     Route: 030
     Dates: start: 20220301, end: 20220301
  7. ASPIRIN [Concomitant]
     Active Substance: ASPIRIN
     Indication: Product used for unknown indication
  8. PLAVIX [Concomitant]
     Active Substance: CLOPIDOGREL BISULFATE
     Indication: Product used for unknown indication
  9. FOLIC ACID [Concomitant]
     Active Substance: FOLIC ACID
     Indication: Product used for unknown indication
  10. ALDACTONE [Concomitant]
     Active Substance: SPIRONOLACTONE
     Indication: Product used for unknown indication
  11. LOSARTAN [Concomitant]
     Active Substance: LOSARTAN
     Indication: Product used for unknown indication
     Dosage: 50MG AM, 25MG PM
  12. VALIUM [Concomitant]
     Active Substance: DIAZEPAM
     Indication: Product used for unknown indication
     Dosage: PRN
  13. VITAMIN B12 [Concomitant]
     Active Substance: CYANOCOBALAMIN
     Indication: Product used for unknown indication
     Dosage: LONG ACTING SLOW RELEASE

REACTIONS (24)
  - Catheter site haemorrhage [Recovering/Resolving]
  - Cardiac disorder [Unknown]
  - Colour blindness [Not Recovered/Not Resolved]
  - Visual impairment [Unknown]
  - Peripheral coldness [Not Recovered/Not Resolved]
  - Cerebrovascular accident [Not Recovered/Not Resolved]
  - Haemorrhage [Unknown]
  - Visual impairment [Not Recovered/Not Resolved]
  - COVID-19 [Unknown]
  - Sinus node dysfunction [Not Recovered/Not Resolved]
  - Haematoma [Recovering/Resolving]
  - Hypertension [Recovering/Resolving]
  - Skin discolouration [Recovered/Resolved]
  - Rheumatoid arthritis [Recovered/Resolved]
  - Heart rate decreased [Unknown]
  - Device issue [Recovering/Resolving]
  - Rheumatoid arthritis [Not Recovered/Not Resolved]
  - Haematocrit decreased [Unknown]
  - Fatigue [Recovering/Resolving]
  - COVID-19 [Recovered/Resolved]
  - Unevaluable event [Recovered/Resolved]
  - Musculoskeletal stiffness [Not Recovered/Not Resolved]
  - Head discomfort [Recovering/Resolving]
  - Haemoglobin decreased [Unknown]

NARRATIVE: CASE EVENT DATE: 20210303
